FAERS Safety Report 10100681 (Version 3)
Quarter: 2014Q2

REPORT INFORMATION
  Report Type: Spontaneous
  Country: US (occurrence: US)
  Receive Date: 20140423
  Receipt Date: 20140521
  Transmission Date: 20141212
  Serious: Yes (Other)
  Sender: FDA-Public Use
  Company Number: CHPA2014US005567

PATIENT
  Age: 72 Year
  Sex: Male

DRUGS (2)
  1. THERAFLU SEVERE COLD NIGHTTIME [Suspect]
     Indication: NASOPHARYNGITIS
     Route: 048
  2. THERAFLU SEVERE COLD NIGHTTIME [Suspect]
     Indication: INFECTION

REACTIONS (2)
  - Diabetes mellitus [Not Recovered/Not Resolved]
  - Pain [Not Recovered/Not Resolved]
